FAERS Safety Report 9199315 (Version 1)
Quarter: 2013Q1

REPORT INFORMATION
  Report Type: Spontaneous
  Country: GB (occurrence: None)
  Receive Date: 20130326
  Receipt Date: 20130326
  Transmission Date: 20140127
  Serious: Yes (Hospitalization)
  Sender: FDA-Public Use
  Company Number: GB-DEXPHARM-20130121

PATIENT
  Age: 39 Year
  Sex: 0

DRUGS (1)
  1. DICLOFENAC [Suspect]
     Indication: BACK PAIN
     Dosage: 1 IN 1 DAYS
     Route: 048
     Dates: start: 20000925, end: 20001005

REACTIONS (3)
  - Abdominal symptom [None]
  - Anal ulcer [None]
  - Large intestinal stenosis [None]
